FAERS Safety Report 9477454 (Version 2)
Quarter: 2013Q4

REPORT INFORMATION
  Report Type: Report from Study
  Country: CA (occurrence: CA)
  Receive Date: 20130826
  Receipt Date: 20131002
  Transmission Date: 20140711
  Serious: Yes (Other)
  Sender: FDA-Public Use
  Company Number: CA-ROCHE-1266528

PATIENT
  Sex: Male

DRUGS (2)
  1. LUCENTIS [Suspect]
     Indication: RETINAL VEIN OCCLUSION
     Route: 050
     Dates: start: 20130611, end: 20130612
  2. LUCENTIS [Suspect]
     Route: 050
     Dates: start: 20130612

REACTIONS (2)
  - Cerebrovascular accident [Recovering/Resolving]
  - Speech disorder [Recovering/Resolving]
